FAERS Safety Report 10037102 (Version 1)
Quarter: 2014Q1

REPORT INFORMATION
  Report Type: Spontaneous
  Country: US (occurrence: None)
  Receive Date: 20140325
  Receipt Date: 20140325
  Transmission Date: 20141002
  Serious: Yes (Other)
  Sender: FDA-Public Use
  Company Number: None

PATIENT
  Age: 78 Year
  Sex: Male
  Weight: 90.72 kg

DRUGS (5)
  1. LYRICA PFIZER [Suspect]
     Indication: HYPOAESTHESIA
     Route: 048
     Dates: start: 20140226
  2. LYRICA PFIZER [Suspect]
     Indication: PARAESTHESIA
     Route: 048
     Dates: start: 20140226
  3. LISINOPRIL [Concomitant]
  4. CABERGOLINE [Concomitant]
  5. BABY ASPIRIN [Concomitant]

REACTIONS (2)
  - Hypoaesthesia [None]
  - Condition aggravated [None]
